FAERS Safety Report 6194650-2 (Version None)
Quarter: 2009Q2

REPORT INFORMATION
  Report Type: 
  Country: None (occurrence: None)
  Receive Date: 20090519
  Receipt Date: 20090507
  Transmission Date: 20091009
  Serious: Yes (Other)
  Sender: FDA-Public Use
  Company Number: SE-PFIZER INC-2009203066

PATIENT

DRUGS (13)
  1. SOMATROPIN [Suspect]
     Indication: HYPOPITUITARISM
     Dosage: 0.4 MG, 1X/DAY
     Dates: start: 19981023, end: 20090421
  2. ATMOS [Suspect]
     Indication: HYPOPITUITARISM
     Dosage: UNK
     Dates: start: 19981023, end: 19981118
  3. TESTOVIRON [Suspect]
     Indication: HYPOPITUITARISM
     Dosage: UNK
     Dates: start: 19981218, end: 19991111
  4. TESTOVIRON [Suspect]
     Dosage: UNK
     Dates: start: 20001205, end: 20030207
  5. UNDESTOR [Suspect]
     Indication: HYPOPITUITARISM
     Dosage: UNK
     Dates: start: 20030207, end: 20060215
  6. TESTOSTERONE [Suspect]
     Indication: HYPOPITUITARISM
     Dosage: UNK
     Dates: start: 20060512, end: 20081112
  7. HYDROCORTISONE [Concomitant]
     Dosage: UNK
  8. METFORMIN [Concomitant]
     Dosage: UNK
  9. WARFARIN SODIUM [Concomitant]
     Dosage: UNK
  10. LIPITOR [Concomitant]
     Dosage: UNK
  11. ENALAPRIL [Concomitant]
     Dosage: UNK
  12. LEVOTHYROXINE SODIUM [Concomitant]
     Dosage: UNK
  13. SELOKEN [Concomitant]
     Dosage: UNK

REACTIONS (1)
  - PROSTATE CANCER [None]
